FAERS Safety Report 4640853-5 (Version None)
Quarter: 2005Q2

REPORT INFORMATION
  Report Type: 
  Country: None (occurrence: None)
  Receive Date: 20050324
  Receipt Date: 20041213
  Transmission Date: 20051028
  Serious: No
  Sender: FDA-Public Use
  Company Number: 211063

PATIENT
  Age: 61 Year
  Sex: Female
  Weight: 70.3 kg

DRUGS (4)
  1. AVASTIN [Suspect]
     Indication: COLON CANCER
     Dosage: 350 MG, Q3W, INTRAVENOUS
     Route: 042
     Dates: start: 20041203, end: 20041203
  2. IRINOTECAN 9IRINOTECAN HYDROCHLORIDE) [Concomitant]
  3. LASIX [Concomitant]
  4. PROCARDIA [Concomitant]

REACTIONS (1)
  - HYPERTENSION [None]
